FAERS Safety Report 8260307-7 (Version None)
Quarter: 2012Q2

REPORT INFORMATION
  Report Type: 
  Country: None (occurrence: None)
  Receive Date: 20120404
  Receipt Date: 20120330
  Transmission Date: 20120825
  Serious: Yes (Death, Hospitalization)
  Sender: FDA-Public Use
  Company Number: DE-ROCHE-1040118

PATIENT
  Sex: Male
  Weight: 113 kg

DRUGS (4)
  1. HYDROMORPHONE HCL [Concomitant]
     Dates: start: 20120207
  2. VEMURAFENIB [Suspect]
     Indication: METASTATIC MALIGNANT MELANOMA
     Route: 048
     Dates: start: 20120206, end: 20120209
  3. GABAPENTIN [Suspect]
     Indication: PRODUCT USED FOR UNKNOWN INDICATION
     Dosage: DOSE WAS INCREASED EVERY DAY ABOUT 100 MG
     Dates: start: 20120207
  4. ENOXAPARIN SODIUM [Suspect]
     Indication: PRODUCT USED FOR UNKNOWN INDICATION
     Dosage: ONE TIME
     Dates: start: 20120208, end: 20120208

REACTIONS (7)
  - HAEMATURIA [None]
  - THROMBOCYTOPENIA [None]
  - HAEMOGLOBIN DECREASED [None]
  - URINARY TRACT INFECTION [None]
  - COAGULATION FACTOR DECREASED [None]
  - METASTASES TO SPINE [None]
  - BLOOD LACTATE DEHYDROGENASE INCREASED [None]
